FAERS Safety Report 10149322 (Version 1)
Quarter: 2014Q2

REPORT INFORMATION
  Report Type: Spontaneous
  Country: US (occurrence: None)
  Receive Date: 20140430
  Receipt Date: 20140430
  Transmission Date: 20141212
  Serious: Yes (Other)
  Sender: FDA-Public Use
  Company Number: AUR-APL-2014-05160

PATIENT
  Age: 67 Year
  Sex: Male
  Weight: 115.6 kg

DRUGS (9)
  1. LOSARTAN [Suspect]
     Indication: HYPERTENSION
  2. METFORMIN [Suspect]
     Indication: DIABETES MELLITUS
     Dosage: 4000 MG (2000 MG,2 IN 1 D)
     Route: 048
  3. TAMSULOSIN [Suspect]
     Indication: BENIGN PROSTATIC HYPERPLASIA
     Dosage: 0.8 MG (0.4 MG,2 IN 1 D)
  4. NARDIL [Suspect]
     Indication: DEPRESSION
     Dosage: 60 MG (15 MG,4 IN 1 D)
  5. NARDIL [Suspect]
     Indication: ANXIETY
     Dosage: 60 MG (15 MG,4 IN 1 D)
  6. VIAGRA [Suspect]
     Indication: ERECTILE DYSFUNCTION
  7. GLIPIZIDE [Suspect]
     Indication: DIABETES MELLITUS
     Dosage: 20 MG (10 MG,2 IN 1 D)
  8. LEVOTHYROXINE SODIUM [Suspect]
     Indication: HYPOTHYROIDISM
  9. PROCARDIA (NIFEDIPINE) [Suspect]
     Indication: HYPERLIPIDAEMIA

REACTIONS (1)
  - Large intestine polyp [None]
